FAERS Safety Report 6558457-6 (Version None)
Quarter: 2010Q1

REPORT INFORMATION
  Report Type: 
  Country: None (occurrence: None)
  Receive Date: 20100129
  Receipt Date: 20100118
  Transmission Date: 20100710
  Serious: Yes (Hospitalization, Other)
  Sender: FDA-Public Use
  Company Number: US-PFIZER INC-2010007294

PATIENT
  Age: 55 Year
  Sex: Female
  Weight: 91.4 kg

DRUGS (4)
  1. ZIPRASIDONE HCL [Suspect]
     Dosage: 6 G
     Route: 048
  2. TRAZODONE HCL [Suspect]
     Route: 048
  3. FLUOXETINE [Suspect]
     Dosage: 20 MG, UNK
     Route: 048
  4. BENZTROPINE MESYLATE [Suspect]
     Dosage: 1 MG, UNK
     Route: 048

REACTIONS (12)
  - BLOOD MAGNESIUM DECREASED [None]
  - BLOOD PHOSPHORUS DECREASED [None]
  - DRY MOUTH [None]
  - FLUSHING [None]
  - MYDRIASIS [None]
  - NAUSEA [None]
  - OVERDOSE [None]
  - SKIN WARM [None]
  - SUICIDE ATTEMPT [None]
  - TORSADE DE POINTES [None]
  - VENTRICULAR FIBRILLATION [None]
  - VOMITING [None]
